FAERS Safety Report 8846858 (Version 4)
Quarter: 2013Q2

REPORT INFORMATION
  Report Type: Report from Study
  Country: JP (occurrence: JP)
  Receive Date: 20121018
  Receipt Date: 20130508
  Transmission Date: 20140414
  Serious: Yes (Other)
  Sender: FDA-Public Use
  Company Number: JP-009507513-1210JPN003291

PATIENT
  Age: 68 Year
  Sex: Male
  Weight: 72 kg

DRUGS (15)
  1. PEGINTRON [Suspect]
     Indication: CHRONIC HEPATITIS C
     Dosage: 0.8 MICROGRAM PER KILOGRAM, QW
     Route: 058
     Dates: start: 20120815, end: 20120919
  2. PEGINTRON [Suspect]
     Dosage: 0.8 MICROGRAM PER KILOGRAM PER WEEK
     Route: 058
     Dates: start: 20121003, end: 20121114
  3. PEGINTRON [Suspect]
     Dosage: 0.8 MICROGRAM PER KILOGRAM, QW
     Route: 058
     Dates: start: 20121128, end: 20130206
  4. REBETOL [Suspect]
     Indication: CHRONIC HEPATITIS C
     Dosage: 800 MG, QD
     Route: 048
     Dates: start: 20120815, end: 20120925
  5. REBETOL [Suspect]
     Dosage: 400 MG, QD
     Route: 048
     Dates: start: 20120926, end: 20120926
  6. REBETOL [Suspect]
     Dosage: 400 MG, QD
     Route: 048
     Dates: start: 20121003, end: 20121113
  7. REBETOL [Suspect]
     Dosage: 200 MG, QD
     Route: 048
     Dates: start: 20121128, end: 20130108
  8. REBETOL [Suspect]
     Dosage: 400 MG, QD
     Route: 048
     Dates: start: 20130109, end: 20130212
  9. TELAVIC [Suspect]
     Indication: CHRONIC HEPATITIS C
     Dosage: 1500 MG, QD
     Route: 048
     Dates: start: 20120815, end: 20120925
  10. TELAVIC [Suspect]
     Dosage: 750 MG, QD
     Route: 048
     Dates: start: 20120926, end: 20120926
  11. TELAVIC [Suspect]
     Dosage: 1500 MG, QD
     Route: 048
     Dates: start: 20121003, end: 20121113
  12. URSO [Concomitant]
     Indication: CHRONIC HEPATITIS C
     Dosage: 600 MG, QD
     Route: 048
  13. NORVASC [Concomitant]
     Indication: HYPERTENSION
     Dosage: 5 MG, QD
     Route: 048
  14. ZETIA [Concomitant]
     Indication: HYPERLIPIDAEMIA
     Dosage: 10 MG, QD
     Route: 048
  15. ALOSITOL [Concomitant]
     Indication: PROPHYLAXIS
     Dosage: 200 MG, QD
     Route: 048

REACTIONS (5)
  - Platelet count decreased [Not Recovered/Not Resolved]
  - Oedema peripheral [Recovered/Resolved]
  - Decreased appetite [Recovered/Resolved]
  - Malaise [Recovered/Resolved]
  - Haemoglobin decreased [Not Recovered/Not Resolved]
